FAERS Safety Report 10620911 (Version 1)
Quarter: 2014Q4

REPORT INFORMATION
  Report Type: Spontaneous
  Country: PT (occurrence: PT)
  Receive Date: 20141202
  Receipt Date: 20141202
  Transmission Date: 20150529
  Serious: Yes (Other)
  Sender: FDA-Public Use
  Company Number: PT-009507513-1411PRT013164

PATIENT
  Age: 65 Year
  Sex: Female
  Weight: 83 kg

DRUGS (4)
  1. ESMERON [Suspect]
     Active Substance: ROCURONIUM BROMIDE
     Dosage: 140 MILLIGRAMS IN SINGLE ADMINISTRATION
     Route: 040
     Dates: start: 20141118
  2. CEFAZOLIN SODIUM. [Suspect]
     Active Substance: CEFAZOLIN SODIUM
     Indication: ANTIBIOTIC PROPHYLAXIS
     Dosage: 2000 MG IN SINGLE ADMINISTRATION IN 15 SECONDS
     Route: 040
     Dates: start: 20141118
  3. DIPRIVAN [Suspect]
     Active Substance: PROPOFOL
     Dosage: 140 MILLIGRAMS IN SINGLE ADMINISTRATION
     Route: 040
     Dates: start: 20141118
  4. FENTANYL B BRAUN [Suspect]
     Active Substance: FENTANYL
     Dosage: 0,15 MILLIGRAMS IN SINGLE ADMINISTRATION
     Route: 040
     Dates: start: 20141118

REACTIONS (4)
  - Rash generalised [Recovered/Resolved]
  - Rash erythematous [Recovered/Resolved]
  - Anaphylactic reaction [Recovered/Resolved]
  - Dermatitis allergic [Recovered/Resolved]

NARRATIVE: CASE EVENT DATE: 20141118
